FAERS Safety Report 10570831 (Version 1)
Quarter: 2014Q4

REPORT INFORMATION
  Report Type: Spontaneous
  Country: US (occurrence: None)
  Receive Date: 20141106
  Receipt Date: 20141106
  Transmission Date: 20150529
  Serious: No
  Sender: FDA-Public Use
  Company Number: None

PATIENT
  Sex: Male
  Weight: 117.94 kg

DRUGS (1)
  1. RISPERDAL [Suspect]
     Active Substance: RISPERIDONE
     Indication: SCHIZOPHRENIA
     Dosage: 50 MG RISPERDAL CONTRA TABLETS EVERY 2 WEEKS

REACTIONS (4)
  - Arthropathy [None]
  - Hypoaesthesia [None]
  - Breast enlargement [None]
  - Fall [None]
